FAERS Safety Report 18445686 (Version 1)
Quarter: 2020Q4

REPORT INFORMATION
  Report Type: Spontaneous
  Country: US (occurrence: US)
  Receive Date: 20201029
  Receipt Date: 20201029
  Transmission Date: 20210114
  Serious: No
  Sender: FDA-Public Use
  Company Number: None

PATIENT
  Age: 74 Year
  Sex: Female
  Weight: 88.2 kg

DRUGS (13)
  1. FUROSEMIDE 20MG [Concomitant]
     Active Substance: FUROSEMIDE
  2. KETOCONAZOLE 2% [Concomitant]
     Active Substance: KETOCONAZOLE
  3. VITAMIN D 2000IU [Concomitant]
  4. PIQRAY [Suspect]
     Active Substance: ALPELISIB
     Indication: BREAST CANCER FEMALE
     Route: 048
     Dates: start: 20200619, end: 20201029
  5. VERZENIO [Concomitant]
     Active Substance: ABEMACICLIB
  6. BETHANECHOL CHLORIDE 10MG [Concomitant]
  7. ZOFRAN [Concomitant]
     Active Substance: ONDANSETRON HYDROCHLORIDE
  8. SYNTHROID [Concomitant]
     Active Substance: LEVOTHYROXINE SODIUM
  9. OMEPRAZOLE 20MG [Concomitant]
     Active Substance: OMEPRAZOLE
  10. ELIQUIS [Concomitant]
     Active Substance: APIXABAN
  11. AMIODARONE 100MG [Concomitant]
     Active Substance: AMIODARONE
  12. MARINOL 10MG [Concomitant]
  13. IMODIUM A-D 2MG [Concomitant]

REACTIONS (3)
  - Diarrhoea [None]
  - Decreased appetite [None]
  - Asthenia [None]

NARRATIVE: CASE EVENT DATE: 20201029
